FAERS Safety Report 7280282-1 (Version None)
Quarter: 2011Q1

REPORT INFORMATION
  Report Type: 
  Country: None (occurrence: None)
  Receive Date: 20110208
  Receipt Date: 20101231
  Transmission Date: 20110831
  Serious: Yes (Hospitalization, Congenital Anomaly, Other)
  Sender: FDA-Public Use
  Company Number: FR-BAYER-201039070GPV

PATIENT
  Sex: Female
  Weight: 2.05 kg

DRUGS (2)
  1. MIRENA [Suspect]
     Dosage: 20 ?G (DAILY DOSE), CONT, TRANSPLACENTAL
     Route: 064
     Dates: start: 20100129
  2. MIRENA [Suspect]
     Dosage: 20 ?G (DAILY DOSE), CONT, TRANSPLACENTAL
     Route: 064
     Dates: start: 20100129

REACTIONS (5)
  - GROWTH RETARDATION [None]
  - SMALL FOR DATES BABY [None]
  - PREMATURE BABY [None]
  - HYPOGLYCAEMIA [None]
  - MICROCEPHALY [None]
